FAERS Safety Report 17839396 (Version 1)
Quarter: 2020Q2

REPORT INFORMATION
  Report Type: Spontaneous
  Country: US (occurrence: US)
  Receive Date: 20200529
  Receipt Date: 20200529
  Transmission Date: 20200714
  Serious: No
  Sender: FDA-Public Use
  Company Number: US-STRIDES ARCOLAB LIMITED-2020SP004597

PATIENT

DRUGS (4)
  1. CEFTAROLINE FOSAMIL [Concomitant]
     Active Substance: CEFTAROLINE FOSAMIL
     Indication: STAPHYLOCOCCAL INFECTION
     Dosage: UNK
     Route: 065
  2. VANCOMYCIN [Suspect]
     Active Substance: VANCOMYCIN
     Indication: STAPHYLOCOCCAL INFECTION
     Dosage: UNK
     Route: 051
  3. VANCOMYCIN [Suspect]
     Active Substance: VANCOMYCIN
     Indication: BACTERAEMIA
  4. CEFTAROLINE FOSAMIL [Concomitant]
     Active Substance: CEFTAROLINE FOSAMIL
     Indication: BACTERAEMIA

REACTIONS (1)
  - Drug level decreased [Unknown]
